FAERS Safety Report 21937829 (Version 1)
Quarter: 2023Q1

REPORT INFORMATION
  Report Type: Spontaneous
  Country: US (occurrence: None)
  Receive Date: 20230201
  Receipt Date: 20230201
  Transmission Date: 20230418
  Serious: Yes (Disabling)
  Sender: FDA-Public Use
  Company Number: None

PATIENT
  Age: 38 Year
  Sex: Female
  Weight: 72 kg

DRUGS (5)
  1. SERTRALINE HYDROCHLORIDE [Suspect]
     Active Substance: SERTRALINE HYDROCHLORIDE
     Indication: Anxiety
     Dosage: OTHER QUANTITY : 1 TABLET(S);?
     Route: 048
     Dates: start: 20211006, end: 20220103
  2. RESTASIS [Concomitant]
  3. METHIMAZOLE [Concomitant]
     Active Substance: METHIMAZOLE
  4. REFRESH SOLUTION NOS [Concomitant]
     Active Substance: CARBOXYMETHYLCELLULOSE SODIUM\GLYCERIN
  5. Refresh night eye gel [Concomitant]

REACTIONS (12)
  - Diplopia [None]
  - Dry eye [None]
  - Photophobia [None]
  - Eye pain [None]
  - Mobility decreased [None]
  - Impaired driving ability [None]
  - Therapy cessation [None]
  - Visual impairment [None]
  - Myopia [None]
  - Asthenopia [None]
  - Job dissatisfaction [None]
  - Quality of life decreased [None]

NARRATIVE: CASE EVENT DATE: 20211031
